FAERS Safety Report 15714226 (Version 1)
Quarter: 2018Q4

REPORT INFORMATION
  Report Type: Spontaneous
  Country: FR (occurrence: FR)
  Receive Date: 20181212
  Receipt Date: 20181212
  Transmission Date: 20190205
  Serious: Yes (Other)
  Sender: FDA-Public Use
  Company Number: FR-EXELIXIS-CABO-18017577

PATIENT

DRUGS (1)
  1. CABOMETYX [Suspect]
     Active Substance: CABOZANTINIB S-MALATE
     Indication: PRODUCT USED FOR UNKNOWN INDICATION
     Dosage: UNK

REACTIONS (3)
  - Cardiac failure [Not Recovered/Not Resolved]
  - Pneumonia [Not Recovered/Not Resolved]
  - Pleural effusion [Not Recovered/Not Resolved]
